FAERS Safety Report 9831547 (Version 1)
Quarter: 2014Q1

REPORT INFORMATION
  Report Type: Spontaneous
  Country: US (occurrence: US)
  Receive Date: 20140121
  Receipt Date: 20140121
  Transmission Date: 20141002
  Serious: Yes (Other)
  Sender: FDA-Public Use
  Company Number: US-ROCHE-1331685

PATIENT
  Age: 56 Year
  Sex: Female

DRUGS (3)
  1. TAMIFLU [Suspect]
     Indication: FEELING ABNORMAL
     Route: 048
     Dates: start: 201401
  2. VALIUM [Suspect]
     Indication: PRODUCT USED FOR UNKNOWN INDICATION
     Route: 048
  3. ADDERALL XR [Concomitant]

REACTIONS (8)
  - Hallucination [Unknown]
  - Vertigo [Unknown]
  - Rash [Unknown]
  - Headache [Unknown]
  - Pyrexia [Unknown]
  - Feeling drunk [Unknown]
  - Dyspnoea [Unknown]
  - Coma [Unknown]
